FAERS Safety Report 7513740-2 (Version None)
Quarter: 2011Q2

REPORT INFORMATION
  Report Type: 
  Country: None (occurrence: None)
  Receive Date: 20110531
  Receipt Date: 20110524
  Transmission Date: 20111010
  Serious: Yes (Other)
  Sender: FDA-Public Use
  Company Number: US-PFIZER INC-2011090945

PATIENT
  Age: 36 Year
  Sex: Female

DRUGS (7)
  1. GEODON [Suspect]
     Dosage: 160 MG, UNK
     Route: 048
  2. LITHIUM [Concomitant]
     Indication: MOOD ALTERED
     Dosage: UNK
     Route: 048
  3. AMBIEN [Concomitant]
     Indication: SLEEP DISORDER
     Dosage: UNK
     Route: 048
  4. GEODON [Suspect]
     Indication: BIPOLAR DISORDER
     Dosage: 200 MG, 40MG AM+ 160MG AT BEDTIME
     Route: 048
  5. WELLBUTRIN [Concomitant]
     Indication: DEPRESSION
     Dosage: UNK
     Route: 048
  6. LAMICTAL [Concomitant]
     Indication: MOOD ALTERED
     Dosage: UNK
     Route: 048
     Dates: start: 20101201
  7. TRAZODONE [Concomitant]
     Indication: SLEEP DISORDER
     Dosage: UNK
     Route: 048

REACTIONS (3)
  - EYE DISORDER [None]
  - EYE MOVEMENT DISORDER [None]
  - DRY EYE [None]
